FAERS Safety Report 4346220-6 (Version None)
Quarter: 2004Q1

REPORT INFORMATION
  Report Type: 
  Country: None (occurrence: None)
  Receive Date: 20040325
  Receipt Date: 20031202
  Transmission Date: 20041129
  Serious: No
  Sender: FDA-Public Use
  Company Number: USA031253789

PATIENT
  Sex: Female

DRUGS (2)
  1. FORTEO [Suspect]
  2. BLOOD PRESSURE MEDICINE [Concomitant]

REACTIONS (4)
  - BACK PAIN [None]
  - BLOOD PRESSURE INCREASED [None]
  - HEART RATE INCREASED [None]
  - POLLAKIURIA [None]
